FAERS Safety Report 6985889-4 (Version None)
Quarter: 2010Q3

REPORT INFORMATION
  Report Type: 
  Country: None (occurrence: None)
  Receive Date: 20100827
  Receipt Date: 20100708
  Transmission Date: 20110219
  Serious: No
  Sender: FDA-Public Use
  Company Number: 015340

PATIENT

DRUGS (3)
  1. LACOSAMIDE [Suspect]
     Dosage: 300 MG
  2. PHENYTOIN [Concomitant]
  3. DEPO-PROVERA [Concomitant]

REACTIONS (1)
  - PHOTOSENSITIVITY REACTION [None]
